FAERS Safety Report 7619706-6 (Version None)
Quarter: 2011Q3

REPORT INFORMATION
  Report Type: 
  Country: None (occurrence: None)
  Receive Date: 20110719
  Receipt Date: 20110705
  Transmission Date: 20111222
  Serious: Yes (Death)
  Sender: FDA-Public Use
  Company Number: US-MYLANLABS-2011S1014214

PATIENT
  Age: 39 Year
  Sex: Female

DRUGS (7)
  1. PERCOCET [Suspect]
     Dosage: HYDROCODONE/PARACETAMOL 5/325 ONE TABLET EVERY 6 HOURS WHEN REQUIRED
     Route: 065
  2. PERCOCET [Suspect]
     Dosage: HYDROCODONE/PARACETAMOL 5/325 ONE TABLET EVERY 6 HOURS WHEN REQUIRED
     Route: 065
  3. METHADONE HCL [Suspect]
     Indication: MUSCULOSKELETAL PAIN
     Dosage: 10MG/DAY
     Route: 065
  4. PERCOCET [Suspect]
     Indication: MUSCULOSKELETAL PAIN
     Dosage: HYDROCODONE/PARACETAMOL 5/325 EIGHT TABLETS DAILY
     Route: 065
  5. DIAZEPAM [Suspect]
     Route: 065
  6. DOXEPIN [Suspect]
     Route: 065
  7. PERCOCET [Suspect]
     Indication: BREAKTHROUGH PAIN
     Dosage: HYDROCODONE/PARACETAMOL 5/325 EIGHT TABLETS DAILY
     Route: 065

REACTIONS (2)
  - OVERDOSE [None]
  - DRUG DEPENDENCE [None]
